FAERS Safety Report 11724522 (Version 1)
Quarter: 2015Q4

REPORT INFORMATION
  Report Type: Spontaneous
  Country: US (occurrence: US)
  Receive Date: 20151111
  Receipt Date: 20151111
  Transmission Date: 20160304
  Serious: No
  Sender: FDA-Public Use
  Company Number: US-GILEAD-2015-0181148

PATIENT
  Sex: Female

DRUGS (1)
  1. HARVONI [Suspect]
     Active Substance: LEDIPASVIR\SOFOSBUVIR
     Indication: PRODUCT USED FOR UNKNOWN INDICATION
     Dosage: UNK
     Route: 065
     Dates: end: 20151028

REACTIONS (13)
  - Diarrhoea [Unknown]
  - Dizziness [Unknown]
  - Headache [Unknown]
  - Insomnia [Unknown]
  - Skin ulcer [Unknown]
  - Migraine [Unknown]
  - Pyrexia [Unknown]
  - Eye irritation [Unknown]
  - Oropharyngeal pain [Unknown]
  - Arthralgia [Unknown]
  - Depression [Unknown]
  - Chills [Unknown]
  - Fatigue [Unknown]
